FAERS Safety Report 8470548-1 (Version None)
Quarter: 2012Q2

REPORT INFORMATION
  Report Type: 
  Country: None (occurrence: None)
  Receive Date: 20120627
  Receipt Date: 20120619
  Transmission Date: 20120825
  Serious: No
  Sender: FDA-Public Use
  Company Number: PHEH2012US008975

PATIENT
  Sex: Female
  Weight: 64.399 kg

DRUGS (8)
  1. ATENOLOL [Concomitant]
  2. CALCIUM [Concomitant]
  3. TASIGNA [Suspect]
     Dosage: 300 MG, Q12H
     Route: 048
     Dates: start: 20120416
  4. PREDNISONE TAB [Concomitant]
  5. AMLODIPINE [Concomitant]
  6. TASIGNA [Suspect]
     Indication: CHRONIC MYELOID LEUKAEMIA
     Dosage: 300 MG, BID
     Route: 048
     Dates: start: 20111114
  7. FISH OIL [Concomitant]
  8. VIGAMOX [Concomitant]

REACTIONS (4)
  - ABDOMINAL PAIN UPPER [None]
  - ALOPECIA [None]
  - SKIN HYPERPIGMENTATION [None]
  - JOINT SWELLING [None]
